FAERS Safety Report 15158554 (Version 3)
Quarter: 2018Q4

REPORT INFORMATION
  Report Type: Spontaneous
  Country: FR (occurrence: FR)
  Receive Date: 20180718
  Receipt Date: 20181008
  Transmission Date: 20190204
  Serious: Yes (Death, Hospitalization, Other)
  Sender: FDA-Public Use
  Company Number: FR-PFIZER INC-2018287514

PATIENT
  Age: 71 Year
  Sex: Male
  Weight: 91 kg

DRUGS (21)
  1. TAHOR [Concomitant]
     Active Substance: ATORVASTATIN CALCIUM
     Dosage: 40 MG, UNK
     Dates: start: 20140929
  2. ELIQUIS [Concomitant]
     Active Substance: APIXABAN
     Dosage: UNK
     Dates: start: 20140929
  3. PLAVIX [Concomitant]
     Active Substance: CLOPIDOGREL BISULFATE
     Dosage: 75 MG, UNK
     Dates: start: 20151224
  4. BISOPROLOL [Concomitant]
     Active Substance: BISOPROLOL
     Dosage: UNK
     Dates: start: 20151224
  5. STILNOX [Concomitant]
     Active Substance: ZOLPIDEM TARTRATE
     Dosage: 10 MG, UNK
     Dates: start: 20140929
  6. PANTOPRAZOLE [Concomitant]
     Active Substance: PANTOPRAZOLE
     Dosage: 40 UNK
     Dates: start: 20140929
  7. AMIODARONE [Concomitant]
     Active Substance: AMIODARONE
     Dosage: UNK
     Dates: start: 20151224
  8. NIFLUGEL [Concomitant]
     Active Substance: NIFLUMIC ACID
     Dosage: UNK
     Dates: start: 20170603
  9. CORDARONE [Suspect]
     Active Substance: AMIODARONE HYDROCHLORIDE
     Dosage: UNK
     Dates: start: 200903
  10. CORDARONE [Suspect]
     Active Substance: AMIODARONE HYDROCHLORIDE
     Dosage: 200 MG, UNK
     Dates: start: 20141004
  11. ALPRAZOLAM. [Concomitant]
     Active Substance: ALPRAZOLAM
     Dosage: UNK
     Dates: start: 20151224
  12. CORDARONE [Suspect]
     Active Substance: AMIODARONE HYDROCHLORIDE
     Dosage: UNK
     Dates: start: 20170603, end: 201707
  13. ZOLPIDEM [Concomitant]
     Active Substance: ZOLPIDEM\ZOLPIDEM TARTRATE
     Dosage: 10 MG, UNK
     Dates: start: 20151224
  14. PERINDOPRIL [Concomitant]
     Active Substance: PERINDOPRIL
     Dosage: 4 MG, UNK
     Dates: start: 20170603
  15. CORDARONE [Suspect]
     Active Substance: AMIODARONE HYDROCHLORIDE
     Dosage: 400 MG, UNK
     Dates: start: 20140929, end: 20141004
  16. AMIODARONE HCL [Suspect]
     Active Substance: AMIODARONE HYDROCHLORIDE
     Dosage: 1 DF, DAILY
     Dates: start: 201512
  17. KARDEGIC [Concomitant]
     Active Substance: ASPIRIN DL-LYSINE
     Dosage: 75 UG, UNK
     Dates: start: 20151224
  18. ATORVASTATINE [ATORVASTATIN] [Concomitant]
     Dosage: UNK
     Dates: start: 20170603
  19. CYCLO 3 [MELILOTUS OFFICINALIS;RUSCUS ACULEATUS] [Concomitant]
     Dosage: UNK
     Dates: start: 20170603
  20. DOLIPRANE [Concomitant]
     Active Substance: ACETAMINOPHEN
     Dosage: 500 NG, UNK
     Dates: start: 20140929
  21. LERCAN [Concomitant]
     Active Substance: LERCANIDIPINE
     Dosage: 10 MG, UNK
     Dates: start: 20151224

REACTIONS (13)
  - Fatigue [Fatal]
  - Interstitial lung disease [Fatal]
  - Tachycardia [Unknown]
  - Chest discomfort [Fatal]
  - Cerebrovascular accident [Fatal]
  - Gait disturbance [Fatal]
  - Anaemia [Fatal]
  - Dyspnoea [Fatal]
  - Interstitial lung disease [Fatal]
  - Blood creatinine increased [Fatal]
  - Malaise [Fatal]
  - Acute respiratory distress syndrome [Fatal]
  - Acute respiratory failure [Fatal]

NARRATIVE: CASE EVENT DATE: 2014
